FAERS Safety Report 5585203-5 (Version None)
Quarter: 2008Q1

REPORT INFORMATION
  Report Type: 
  Country: None (occurrence: None)
  Receive Date: 20080109
  Receipt Date: 20080108
  Transmission Date: 20080703
  Serious: Yes (Other)
  Sender: FDA-Public Use
  Company Number: US-BRISTOL-MYERS SQUIBB COMPANY-14034003

PATIENT
  Age: 51 Year
  Sex: Male
  Weight: 79 kg

DRUGS (6)
  1. TEQUIN [Suspect]
     Dates: start: 20060103
  2. OXYCONTIN [Concomitant]
     Indication: PAIN
     Dosage: 1 DOSAGE FORM = 15MG + 30MG
     Route: 048
  3. SOMA [Concomitant]
     Dosage: FREQUENCY INCREASED TO QID FROM 25MAY06
     Dates: start: 20060301
  4. XANAX [Concomitant]
     Dosage: FREQUENCY: TID + QID
  5. AMBIEN [Concomitant]
  6. PROMETHAZINE [Concomitant]

REACTIONS (2)
  - HYPOAESTHESIA [None]
  - MUSCULAR WEAKNESS [None]
